FAERS Safety Report 5626101-8 (Version None)
Quarter: 2008Q1

REPORT INFORMATION
  Report Type: 
  Country: None (occurrence: None)
  Receive Date: 20080213
  Receipt Date: 20080213
  Transmission Date: 20080703
  Serious: Yes (Other)
  Sender: FDA-Public Use
  Company Number: None

PATIENT
  Age: 70 Year
  Sex: Female
  Weight: 69.8539 kg

DRUGS (2)
  1. FENTANYL [Suspect]
     Indication: PAIN
     Dosage: ONE  ONCE EVERY 3RD DAY
     Dates: start: 20080131, end: 20080201
  2. FENTANYL [Suspect]
     Indication: SPINAL COMPRESSION FRACTURE
     Dosage: ONE  ONCE EVERY 3RD DAY
     Dates: start: 20080131, end: 20080201

REACTIONS (8)
  - DIZZINESS [None]
  - GAIT DISTURBANCE [None]
  - HYPERSOMNIA [None]
  - ILL-DEFINED DISORDER [None]
  - IMPAIRED DRIVING ABILITY [None]
  - NAUSEA [None]
  - PRURITUS [None]
  - VOMITING [None]
